FAERS Safety Report 9420304 (Version 1)
Quarter: 2013Q3

REPORT INFORMATION
  Report Type: Spontaneous
  Country: FR (occurrence: FR)
  Receive Date: 20130725
  Receipt Date: 20130725
  Transmission Date: 20140515
  Serious: Yes (Hospitalization)
  Sender: FDA-Public Use
  Company Number: FR-SANOFI-AVENTIS-2013SA073223

PATIENT
  Age: 81 Year
  Sex: Male
  Weight: 86 kg

DRUGS (9)
  1. CORVASAL [Suspect]
     Indication: ANGINA PECTORIS
     Route: 048
     Dates: start: 20130609, end: 20130621
  2. LOVENOX [Suspect]
     Indication: PRODUCT USED FOR UNKNOWN INDICATION
     Route: 058
     Dates: start: 20130611, end: 20130702
  3. LYRICA [Suspect]
     Indication: PAIN
     Route: 048
     Dates: start: 20130612, end: 20130702
  4. LAROXYL [Suspect]
     Indication: ANXIETY
     Route: 048
     Dates: start: 20130612, end: 20130701
  5. AUGMENTIN [Suspect]
     Indication: ERYSIPELAS
     Route: 048
     Dates: start: 20130610, end: 20130702
  6. METRONIDAZOLE [Suspect]
     Indication: ERYSIPELAS
     Route: 042
     Dates: start: 20130613, end: 20130616
  7. TAHOR [Suspect]
     Indication: DYSLIPIDAEMIA
     Route: 048
     Dates: end: 20130624
  8. TAHOR [Suspect]
     Indication: DYSLIPIDAEMIA
     Route: 048
     Dates: start: 20130625, end: 20130625
  9. TAHOR [Suspect]
     Indication: DYSLIPIDAEMIA
     Route: 048
     Dates: start: 20130626

REACTIONS (2)
  - Cholestasis [Not Recovered/Not Resolved]
  - Condition aggravated [Not Recovered/Not Resolved]
